FAERS Safety Report 4909590-3 (Version None)
Quarter: 2006Q1

REPORT INFORMATION
  Report Type: 
  Country: None (occurrence: None)
  Receive Date: 20060213
  Receipt Date: 20050414
  Transmission Date: 20060701
  Serious: Yes (Hospitalization, Other)
  Sender: FDA-Public Use
  Company Number: US-MERCK-0504USA03125

PATIENT
  Age: 61 Year
  Sex: Female
  Weight: 74 kg

DRUGS (7)
  1. VIOXX [Suspect]
     Indication: INTERVERTEBRAL DISC DEGENERATION
     Route: 048
     Dates: start: 20000101, end: 20010901
  2. AZMACORT [Concomitant]
     Route: 065
  3. NASACORT AQ [Concomitant]
     Route: 065
  4. METROCREAM [Concomitant]
     Route: 065
  5. SEREVENT [Concomitant]
     Route: 055
  6. SINGULAIR [Concomitant]
     Route: 065
  7. ESTRATEST [Concomitant]
     Route: 065

REACTIONS (25)
  - ACUTE MYOCARDIAL INFARCTION [None]
  - ANXIETY [None]
  - ATRIAL FIBRILLATION [None]
  - CARDIAC FAILURE CONGESTIVE [None]
  - CARDIOMEGALY [None]
  - CARPAL TUNNEL SYNDROME [None]
  - CATARACT [None]
  - CEREBROVASCULAR ACCIDENT [None]
  - CEREBROVASCULAR DISORDER [None]
  - CHEST PAIN [None]
  - CHRONIC OBSTRUCTIVE PULMONARY DISEASE [None]
  - CORONARY ARTERY DISEASE [None]
  - DIZZINESS [None]
  - EAR PAIN [None]
  - HYPERLIPIDAEMIA [None]
  - HYPERTENSION [None]
  - MUSCLE STRAIN [None]
  - NERVE COMPRESSION [None]
  - OEDEMA PERIPHERAL [None]
  - PLEURAL EFFUSION [None]
  - PRURITUS [None]
  - SINUS DISORDER [None]
  - SUDDEN CARDIAC DEATH [None]
  - SYNCOPE [None]
  - TINNITUS [None]
